FAERS Safety Report 7130748-X (Version None)
Quarter: 2010Q4

REPORT INFORMATION
  Report Type: 
  Country: None (occurrence: None)
  Receive Date: 20101201
  Receipt Date: 20101105
  Transmission Date: 20110411
  Serious: Yes (Hospitalization)
  Sender: FDA-Public Use
  Company Number: JP-ROCHE-733323

PATIENT
  Sex: Male
  Weight: 59 kg

DRUGS (7)
  1. TOCILIZUMAB [Suspect]
     Indication: RHEUMATOID ARTHRITIS
     Dosage: DOSE FORM REPORTED AS INTRAVENOUS
     Route: 058
     Dates: start: 20100716
  2. TOCILIZUMAB [Suspect]
     Dosage: DOSE FORM : SUBCUTANEOUS
     Route: 058
     Dates: end: 20100922
  3. CELCOX [Concomitant]
     Route: 048
     Dates: start: 20100716
  4. CYTOTEC [Concomitant]
     Route: 048
     Dates: start: 20100623
  5. VOGLIBOSE [Concomitant]
     Route: 048
     Dates: start: 20100323
  6. AMARYL [Concomitant]
     Route: 048
     Dates: start: 20100625
  7. VOLTAREN [Concomitant]
     Route: 054
     Dates: start: 20101005

REACTIONS (2)
  - BENIGN BONE NEOPLASM [None]
  - SPINAL CORD NEOPLASM [None]
